FAERS Safety Report 13140437 (Version 1)
Quarter: 2017Q1

REPORT INFORMATION
  Report Type: Spontaneous
  Country: GB (occurrence: GB)
  Receive Date: 20170123
  Receipt Date: 20170123
  Transmission Date: 20170428
  Serious: Yes (Hospitalization)
  Sender: FDA-Public Use
  Company Number: GB-BAYER-2016-239522

PATIENT
  Age: 72 Year
  Sex: Male

DRUGS (1)
  1. XOFIGO [Suspect]
     Active Substance: RADIUM RA-223 DICHLORIDE

REACTIONS (3)
  - Constipation [Recovered/Resolved]
  - Abdominal pain [None]
  - Lower respiratory tract infection [None]

NARRATIVE: CASE EVENT DATE: 2016
